FAERS Safety Report 8812252 (Version 2)
Quarter: 2014Q3

REPORT INFORMATION
  Report Type: Report from Study
  Country: US (occurrence: US)
  Receive Date: 20120927
  Receipt Date: 20140829
  Transmission Date: 20150326
  Serious: Yes (Death, Other)
  Sender: FDA-Public Use
  Company Number: US-ROCHE-1124593

PATIENT
  Sex: Male
  Weight: 77 kg

DRUGS (5)
  1. AVASTIN [Suspect]
     Active Substance: BEVACIZUMAB
     Indication: COLON CANCER
     Route: 042
     Dates: start: 200512
  2. XELODA [Suspect]
     Active Substance: CAPECITABINE
     Indication: COLON CANCER
     Route: 065
  3. AVASTIN [Suspect]
     Active Substance: BEVACIZUMAB
     Indication: COLORECTAL CANCER
  4. LEUCOVORIN [Concomitant]
     Active Substance: LEUCOVORIN
  5. 5-FU [Concomitant]
     Active Substance: FLUOROURACIL

REACTIONS (3)
  - Pleural effusion [Unknown]
  - Death [Fatal]
  - Disease progression [Unknown]
